FAERS Safety Report 7206708-7 (Version None)
Quarter: 2010Q4

REPORT INFORMATION
  Report Type: 
  Country: None (occurrence: None)
  Receive Date: 20101217
  Receipt Date: 20101207
  Transmission Date: 20110411
  Serious: Yes (Hospitalization, Other)
  Sender: FDA-Public Use
  Company Number: 2010US004478

PATIENT
  Age: 61 Year
  Sex: Female
  Weight: 40 kg

DRUGS (5)
  1. PROGRAF [Suspect]
     Indication: HEART TRANSPLANT
     Dosage: 0.5 MG, BID, ORAL; 0.5 MG, UID/QD, ORAL
     Route: 048
     Dates: start: 20030801
  2. CELLCEPT [Concomitant]
  3. MYFORTIC [Concomitant]
  4. PROTONOX (PANTOPRAZOLE) [Concomitant]
  5. PAXIL [Concomitant]

REACTIONS (13)
  - B-CELL LYMPHOMA STAGE II [None]
  - CHILLS [None]
  - GENITAL ABSCESS [None]
  - HYPERCALCAEMIA [None]
  - LEUKOCYTOSIS [None]
  - OSTEOPOROSIS [None]
  - PYREXIA [None]
  - RENAL FAILURE ACUTE [None]
  - SEDATION [None]
  - SKIN CANCER [None]
  - TREATMENT NONCOMPLIANCE [None]
  - TUMOUR LYSIS SYNDROME [None]
  - TYPE 2 DIABETES MELLITUS [None]
